FAERS Safety Report 6721564-9 (Version None)
Quarter: 2010Q2

REPORT INFORMATION
  Report Type: 
  Country: None (occurrence: None)
  Receive Date: 20100512
  Receipt Date: 20100506
  Transmission Date: 20101027
  Serious: Yes (Hospitalization, Other)
  Sender: FDA-Public Use
  Company Number: DE-ASTRAZENECA-2010SE10962

PATIENT
  Age: 60 Year
  Sex: Female
  Weight: 66 kg

DRUGS (4)
  1. ARIMIDEX [Suspect]
     Indication: BREAST CANCER METASTATIC
     Route: 048
     Dates: start: 20090101
  2. ZOMETA [Concomitant]
     Indication: BREAST CANCER METASTATIC
     Route: 042
     Dates: start: 20090201
  3. AREDIA [Concomitant]
     Indication: BREAST CANCER METASTATIC
     Route: 042
     Dates: start: 20091001
  4. ARCOXIA [Concomitant]
     Indication: BREAST CANCER METASTATIC
     Dosage: 30-90 MG AS REQUIRED
     Route: 048
     Dates: start: 20100501

REACTIONS (3)
  - CARPAL TUNNEL SYNDROME [None]
  - TENOSYNOVITIS [None]
  - TRIGGER FINGER [None]
